FAERS Safety Report 5283242-5 (Version None)
Quarter: 2007Q2

REPORT INFORMATION
  Report Type: 
  Country: None (occurrence: None)
  Receive Date: 20070402
  Receipt Date: 20070326
  Transmission Date: 20071010
  Serious: Yes (Other)
  Sender: FDA-Public Use
  Company Number: ES-GLAXOSMITHKLINE-B0464414A

PATIENT
  Age: 46 Year
  Weight: 107 kg

DRUGS (4)
  1. SERETIDE [Suspect]
     Indication: ASTHMA
     Route: 055
     Dates: start: 20060601, end: 20061101
  2. SALBUTAMOL [Suspect]
     Indication: ASTHMA
     Route: 055
     Dates: start: 20060601
  3. PANTOPRAZOL [Suspect]
     Indication: ASTHMA
     Dosage: 40MG PER DAY
     Route: 048
     Dates: start: 20060601
  4. SINGULAIR [Suspect]
     Indication: ASTHMA
     Dosage: 10MG PER DAY
     Route: 048
     Dates: start: 20060601

REACTIONS (5)
  - GINGIVITIS [None]
  - SENSITIVITY OF TEETH [None]
  - TOOTH DISORDER [None]
  - TOOTH LOSS [None]
  - TOOTHACHE [None]
